FAERS Safety Report 4319038-8 (Version None)
Quarter: 2004Q1

REPORT INFORMATION
  Report Type: 
  Country: None (occurrence: None)
  Receive Date: 20040318
  Receipt Date: 20040318
  Transmission Date: 20041129
  Serious: Yes (Other)
  Sender: FDA-Public Use
  Company Number: None

PATIENT
  Sex: Male
  Weight: 72.5755 kg

DRUGS (1)
  1. ZICAM COLD REMEDY GEL TECH [Suspect]
     Indication: NASOPHARYNGITIS
     Dosage: SEPT 9TH NASAL
     Route: 045
     Dates: start: 20030909, end: 20030910

REACTIONS (2)
  - DYSGEUSIA [None]
  - HEADACHE [None]
